FAERS Safety Report 7387142-6 (Version None)
Quarter: 2011Q1

REPORT INFORMATION
  Report Type: 
  Country: None (occurrence: None)
  Receive Date: 20110331
  Receipt Date: 20110322
  Transmission Date: 20110831
  Serious: Yes (Hospitalization)
  Sender: FDA-Public Use
  Company Number: A0913188A

PATIENT
  Age: 63 Year
  Sex: Male
  Weight: 118.4 kg

DRUGS (1)
  1. MELPHALAN [Suspect]
     Indication: DISEASE PROGRESSION
     Dosage: 50MGM2 CYCLIC
     Route: 042
     Dates: start: 20101111, end: 20101209

REACTIONS (3)
  - THROMBOCYTOPENIA [None]
  - SYNCOPE [None]
  - ANAEMIA [None]
